FAERS Safety Report 23243159 (Version 3)
Quarter: 2024Q3

REPORT INFORMATION
  Report Type: Report from Study
  Country: US (occurrence: US)
  Receive Date: 20231130
  Receipt Date: 20240715
  Transmission Date: 20241016
  Serious: No
  Sender: ALEXION PHARMACEUTICALS
  Company Number: US-ALXN-202311USA001700US

PATIENT

DRUGS (1)
  1. STRENSIQ [Suspect]
     Active Substance: ASFOTASE ALFA
     Indication: Product used for unknown indication
     Dosage: UNK
     Route: 065

REACTIONS (9)
  - Albumin globulin ratio increased [Unknown]
  - Spinal osteoarthritis [Unknown]
  - Kyphosis [Unknown]
  - Blood glucose decreased [Unknown]
  - Blood urea nitrogen/creatinine ratio increased [Unknown]
  - Scoliosis [Unknown]
  - Diastasis recti abdominis [Unknown]
  - Blood sodium decreased [Unknown]
  - Temporomandibular pain and dysfunction syndrome [Unknown]

NARRATIVE: CASE EVENT DATE: 20231226
